FAERS Safety Report 12179802 (Version 1)
Quarter: 2016Q1

REPORT INFORMATION
  Report Type: Spontaneous
  Country: US (occurrence: None)
  Receive Date: 20160314
  Receipt Date: 20160314
  Transmission Date: 20160526
  Serious: No
  Sender: FDA-Public Use
  Company Number: None

PATIENT
  Age: 31 Year
  Sex: Male
  Weight: 82.1 kg

DRUGS (4)
  1. DEXILANT [Suspect]
     Active Substance: DEXLANSOPRAZOLE
  2. ALLERGY SHOT [Concomitant]
     Active Substance: UNSPECIFIED INGREDIENT
  3. CIPROFLOXACIN. [Suspect]
     Active Substance: CIPROFLOXACIN
     Dosage: 1  TWICE DAILY TAKEN BY MOUTH
     Route: 048
     Dates: start: 20160304, end: 20160308
  4. LIALDA [Concomitant]
     Active Substance: MESALAMINE

REACTIONS (8)
  - Abdominal pain [None]
  - Nerve injury [None]
  - Nausea [None]
  - Abdominal distension [None]
  - Weight increased [None]
  - Pain [None]
  - Diarrhoea [None]
  - Hypoaesthesia [None]

NARRATIVE: CASE EVENT DATE: 20160304
